FAERS Safety Report 7235198-3 (Version None)
Quarter: 2011Q1

REPORT INFORMATION
  Report Type: 
  Country: None (occurrence: None)
  Receive Date: 20110120
  Receipt Date: 20110118
  Transmission Date: 20110831
  Serious: Yes (Death, Other)
  Sender: FDA-Public Use
  Company Number: FR-BRISTOL-MYERS SQUIBB COMPANY-15490428

PATIENT
  Age: 80 Year
  Sex: Female
  Weight: 86 kg

DRUGS (8)
  1. ATHYMIL [Concomitant]
     Dosage: 60 MG IN THE EVENING
  2. NEXIUM [Concomitant]
  3. ABILIFY [Suspect]
     Indication: BIPOLAR DISORDER
     Route: 048
  4. DIANTALVIC [Concomitant]
  5. DEPAKOTE [Concomitant]
     Dosage: 1 DF= 2 TAB
  6. ATENOLOL [Concomitant]
     Indication: HYPERTENSION
  7. RIVOTRIL [Concomitant]
     Indication: BIPOLAR DISORDER
     Dosage: 12 DROPS IN EVENING
  8. KARDEGIC [Concomitant]
     Indication: CEREBROVASCULAR ACCIDENT

REACTIONS (2)
  - SUDDEN DEATH [None]
  - VOMITING [None]
